FAERS Safety Report 10432215 (Version 1)
Quarter: 2014Q3

REPORT INFORMATION
  Report Type: Spontaneous
  Country: US (occurrence: None)
  Receive Date: 20140904
  Receipt Date: 20140904
  Transmission Date: 20150326
  Serious: Yes (Disabling)
  Sender: FDA-Public Use
  Company Number: None

PATIENT
  Age: 43 Year
  Sex: Female
  Weight: 58.06 kg

DRUGS (1)
  1. RIZATRIPTAN 10 MG AURBOBINDO [Suspect]
     Active Substance: RIZATRIPTAN
     Indication: MIGRAINE
     Dosage: 10MG MAY REPEAT 1 TIME DISSOLVE IN MOUTH
     Dates: start: 20140831

REACTIONS (4)
  - Dysphonia [None]
  - Feeling of body temperature change [None]
  - Dysphagia [None]
  - Hypoaesthesia [None]

NARRATIVE: CASE EVENT DATE: 20140831
